FAERS Safety Report 4962856-3 (Version None)
Quarter: 2006Q2

REPORT INFORMATION
  Report Type: 
  Country: None (occurrence: None)
  Receive Date: 20060405
  Receipt Date: 20060330
  Transmission Date: 20061013
  Serious: Yes (Hospitalization)
  Sender: FDA-Public Use
  Company Number: FR-SOLVAY-00206001068

PATIENT
  Age: 79 Year
  Sex: Female
  Weight: 54 kg

DRUGS (8)
  1. IMOVANE [Concomitant]
     Indication: ILL-DEFINED DISORDER
     Dosage: DAILY DOSE:  UNKNOWN
     Route: 065
  2. COVERSYL [Suspect]
     Indication: ESSENTIAL HYPERTENSION
     Dosage: DAILY DOSE: 2 MILLIGRAM(S)
     Route: 048
  3. LAMOTRIGINE [Suspect]
     Indication: EPILEPSY
     Dosage: DAILY DOSE:  UNKNOWN
     Route: 048
     Dates: start: 20051101, end: 20051129
  4. KARDEGIC [Concomitant]
     Indication: ILL-DEFINED DISORDER
     Dosage: DAILY DOSE: 75 MILLIGRAM(S)
     Route: 048
  5. DEPAKENE [Suspect]
     Indication: EPILEPSY
     Dosage: DAILY DOSE: 750 MILLIGRAM(S)
     Route: 048
     Dates: start: 20051101
  6. MOTILIUM [Suspect]
     Indication: ILL-DEFINED DISORDER
     Dosage: DAILY DOSE:  UNKNOWN
     Route: 065
  7. RULID [Suspect]
     Indication: STOMATITIS
     Dosage: DAILY DOSE:  UNKNOWN
     Route: 065
     Dates: end: 20051101
  8. LANZOR [Suspect]
     Indication: ILL-DEFINED DISORDER
     Dosage: DAILY DOSE: 30 MILLIGRAM(S)
     Route: 048

REACTIONS (7)
  - FOOD ALLERGY [None]
  - HYPERTHERMIA [None]
  - JOINT SPRAIN [None]
  - RASH [None]
  - RASH GENERALISED [None]
  - RESPIRATORY DISORDER [None]
  - STOMATITIS [None]
